FAERS Safety Report 9086864 (Version 1)
Quarter: 2013Q1

REPORT INFORMATION
  Report Type: Report from Study
  Country: US (occurrence: US)
  Receive Date: 20130131
  Receipt Date: 20130131
  Transmission Date: 20140127
  Serious: No
  Sender: FDA-Public Use
  Company Number: US-ABBOTT-12P-163-0995602-00

PATIENT
  Sex: Male

DRUGS (5)
  1. HUMIRA [Suspect]
     Indication: ANKYLOSING SPONDYLITIS
     Dates: start: 2010, end: 2010
  2. HUMIRA [Suspect]
     Dates: start: 201210
  3. PREDNISONE [Concomitant]
     Indication: INFLAMMATION
  4. LORTAB [Concomitant]
     Indication: PAIN
  5. FENTANYL [Concomitant]
     Indication: PAIN
     Dosage: PATCH

REACTIONS (3)
  - Fatigue [Recovered/Resolved]
  - Pain in extremity [Not Recovered/Not Resolved]
  - Pain in extremity [Not Recovered/Not Resolved]
